FAERS Safety Report 7719333-6 (Version None)
Quarter: 2011Q3

REPORT INFORMATION
  Report Type: 
  Country: None (occurrence: None)
  Receive Date: 20110830
  Receipt Date: 20110809
  Transmission Date: 20111222
  Serious: Yes (Death, Hospitalization)
  Sender: FDA-Public Use
  Company Number: CA-JNJFOC-20110803467

PATIENT
  Sex: Female
  Weight: 61 kg

DRUGS (1)
  1. REMICADE [Suspect]
     Indication: CROHN'S DISEASE
     Route: 042
     Dates: start: 20090717

REACTIONS (10)
  - CARDIOGENIC SHOCK [None]
  - DEATH [None]
  - OROPHARYNGEAL PAIN [None]
  - COLECTOMY TOTAL [None]
  - MALAISE [None]
  - EXPLORATIVE LAPAROTOMY [None]
  - PYREXIA [None]
  - CARDIAC DISORDER [None]
  - ASTHENIA [None]
  - SEPSIS [None]
